FAERS Safety Report 12302759 (Version 1)
Quarter: 2016Q2

REPORT INFORMATION
  Report Type: Report from Study
  Country: US (occurrence: US)
  Receive Date: 20160425
  Receipt Date: 20160425
  Transmission Date: 20160815
  Serious: No
  Sender: FDA-Public Use
  Company Number: US-AMGEN-USASL2016049214

PATIENT
  Age: 2 Year
  Sex: Female

DRUGS (1)
  1. ENBREL [Suspect]
     Active Substance: ETANERCEPT
     Indication: JUVENILE IDIOPATHIC ARTHRITIS
     Dosage: 10 MG, 2 TIMES/WK
     Route: 058
     Dates: start: 20160106

REACTIONS (7)
  - Joint swelling [Recovered/Resolved]
  - Vomiting [Unknown]
  - Injection site papule [Unknown]
  - Injection site erythema [Unknown]
  - Rash papular [Not Recovered/Not Resolved]
  - Gait disturbance [Recovered/Resolved]
  - Pyrexia [Unknown]

NARRATIVE: CASE EVENT DATE: 2016
